FAERS Safety Report 12383599 (Version 1)
Quarter: 2016Q2

REPORT INFORMATION
  Report Type: Spontaneous
  Country: IT (occurrence: IT)
  Receive Date: 20160518
  Receipt Date: 20160518
  Transmission Date: 20160815
  Serious: Yes (Other)
  Sender: FDA-Public Use
  Company Number: IT-TEVA-660223ACC

PATIENT
  Age: 54 Year
  Sex: Male

DRUGS (5)
  1. VINCRISTINA TEVA - TEVA PHARMA B.V. [Suspect]
     Active Substance: VINCRISTINE
     Indication: ANAPLASTIC MENINGIOMA
     Dosage: 0.5 MG CYCLICAL
     Route: 041
     Dates: start: 20160101, end: 20160405
  2. SOLDESAM [Concomitant]
     Active Substance: DEXAMETHASONE
     Indication: PRODUCT USED FOR UNKNOWN INDICATION
  3. ENDOXAN BAXTER - 500 MG POLVERE PER SOLUZIONE INIETTABILE [Suspect]
     Active Substance: CYCLOPHOSPHAMIDE
     Indication: ANAPLASTIC MENINGIOMA
     Dosage: 750 MG CYCLICAL
     Route: 041
     Dates: start: 20160101, end: 20160405
  4. ADRIBLASTINA - 10 MG/5 ML POLVERE E SOLVENTE PER SOLUZIONE INIETTABILE [Suspect]
     Active Substance: DOXORUBICIN HYDROCHLORIDE
     Indication: ANAPLASTIC MENINGIOMA
     Dosage: 30 MG CYCLICAL
     Route: 041
     Dates: start: 20160101, end: 20160405
  5. PANTOPAN [Concomitant]
     Active Substance: PANTOPRAZOLE SODIUM
     Indication: PRODUCT USED FOR UNKNOWN INDICATION

REACTIONS (2)
  - Neutropenia [Recovered/Resolved]
  - Leukopenia [Recovered/Resolved]

NARRATIVE: CASE EVENT DATE: 20160415
